FAERS Safety Report 11307986 (Version 2)
Quarter: 2015Q3

REPORT INFORMATION
  Report Type: Spontaneous
  Country: FR (occurrence: FR)
  Receive Date: 20150724
  Receipt Date: 20150925
  Transmission Date: 20151125
  Serious: Yes (Death, Life-Threatening)
  Sender: FDA-Public Use
  Company Number: FR-ASTRAZENECA-2015SE70934

PATIENT
  Age: 25870 Day
  Sex: Male

DRUGS (8)
  1. INSPRA [Concomitant]
     Active Substance: EPLERENONE
  2. ASPEGIC [Interacting]
     Active Substance: ASPIRIN DL-LYSINE
     Route: 042
     Dates: start: 20150706, end: 20150706
  3. BRILIQUE [Suspect]
     Active Substance: TICAGRELOR
     Indication: ACUTE CORONARY SYNDROME
     Route: 048
     Dates: end: 20150706
  4. KARDEGIC [Interacting]
     Active Substance: ASPIRIN LYSINE
     Indication: ACUTE CORONARY SYNDROME
     Route: 048
     Dates: end: 20150706
  5. TAHOR [Concomitant]
     Active Substance: ATORVASTATIN CALCIUM
  6. KREDEX [Concomitant]
     Active Substance: CARVEDILOL
  7. COVERSYL [Concomitant]
     Active Substance: PERINDOPRIL
  8. NATISPRAY [Concomitant]
     Active Substance: NITROGLYCERIN
     Dosage: 0.15 MG AND 0.3 MG IF NEEDED

REACTIONS (2)
  - Drug interaction [Fatal]
  - Haemorrhagic transformation stroke [Fatal]

NARRATIVE: CASE EVENT DATE: 20150706
